FAERS Safety Report 6728857-X (Version None)
Quarter: 2010Q2

REPORT INFORMATION
  Report Type: 
  Country: None (occurrence: None)
  Receive Date: 20100517
  Receipt Date: 20100505
  Transmission Date: 20101027
  Serious: Yes (Hospitalization)
  Sender: FDA-Public Use
  Company Number: US-JNJFOC-20100505656

PATIENT
  Age: 17 Week
  Sex: Female
  Weight: 5.9 kg

DRUGS (2)
  1. TYLENOL INFANTS SUSP DROPS GRAPE [Suspect]
     Route: 048
  2. TYLENOL INFANTS SUSP DROPS GRAPE [Suspect]
     Indication: IRRITABILITY
     Route: 048

REACTIONS (2)
  - CONVULSION [None]
  - PRODUCT QUALITY ISSUE [None]
